FAERS Safety Report 8903572 (Version 1)
Quarter: 2012Q4

REPORT INFORMATION
  Report Type: 
  Country: DE (occurrence: DE)
  Receive Date: 20121112
  Receipt Date: 20121112
  Transmission Date: 20130627
  Serious: Yes (Death, Other)
  Sender: FDA-Public Use
  Company Number: DE-CELGENEUS-062-21660-12110233

PATIENT

DRUGS (6)
  1. ABRAXANE [Suspect]
     Indication: BREAST CANCER
     Route: 041
  2. XELODA [Concomitant]
     Indication: DRUG USE FOR UNKNOWN INDICATION
     Dosage: 2000 milligram/sq. meter
     Route: 048
  3. EPIRUBICIN [Concomitant]
     Indication: DRUG USE FOR UNKNOWN INDICATION
     Dosage: 90 milligram/sq. meter
     Route: 041
  4. CYCLOPHOSPHAMIDE [Concomitant]
     Indication: DRUG USE FOR UNKNOWN INDICATION
     Dosage: 600 milligram/sq. meter
     Route: 041
  5. CYCLOPHOSPHAMIDE [Concomitant]
     Dosage: 500 milligram/sq. meter
     Route: 041
  6. METHOTREXATE [Concomitant]
     Indication: DRUG USE FOR UNKNOWN INDICATION
     Dosage: 40 milligram/sq. meter
     Route: 041

REACTIONS (65)
  - Sepsis [Fatal]
  - Anaemia [Unknown]
  - Leukopenia [Unknown]
  - Neutropenia [Unknown]
  - Febrile neutropenia [Unknown]
  - Thrombocytopenia [Unknown]
  - Fatigue [Unknown]
  - Nausea [Unknown]
  - Vomiting [Unknown]
  - Mucosal inflammation [Unknown]
  - Stomatitis [Unknown]
  - Oesophagitis [Unknown]
  - Diarrhoea [Unknown]
  - Peripheral sensory neuropathy [Unknown]
  - Palmar-plantar erythrodysaesthesia syndrome [Unknown]
  - Hypersensitivity [Unknown]
  - Infection [Unknown]
  - Pyrexia [Unknown]
  - Cardiac disorder [Unknown]
  - Myocardial ischaemia [Unknown]
  - Cardiac failure congestive [Unknown]
  - Embolism [Unknown]
  - Constipation [Unknown]
  - Neutropenic infection [Unknown]
  - Abdominal pain upper [Unknown]
  - Accidental poisoning [Unknown]
  - Discomfort [Unknown]
  - Metabolic disorder [Unknown]
  - Adverse event [Unknown]
  - Nervous system disorder [Unknown]
  - Oedema [Unknown]
  - Dizziness [Unknown]
  - Dysgeusia [Unknown]
  - Angiopathy [Unknown]
  - Dyspnoea [Unknown]
  - Decreased appetite [Unknown]
  - Epistaxis [Unknown]
  - Alopecia [Unknown]
  - Cough [Unknown]
  - Rhinorrhoea [Unknown]
  - Respiratory disorder [Unknown]
  - Conjunctivitis [Unknown]
  - Haematotoxicity [Unknown]
  - Dry mouth [Unknown]
  - Dyspepsia [Unknown]
  - Gastrointestinal disorder [Unknown]
  - Hepatobiliary disease [Unknown]
  - Nail disorder [Unknown]
  - Dry skin [Unknown]
  - Skin disorder [Unknown]
  - Renal disorder [Unknown]
  - Reproductive tract disorder [Unknown]
  - Blood pressure increased [Unknown]
  - Haematotoxicity [Unknown]
  - Musculoskeletal disorder [Unknown]
  - Blood bilirubin increased [Unknown]
  - Blood creatinine increased [Unknown]
  - Eye disorder [Unknown]
  - Lacrimation increased [Unknown]
  - Headache [Unknown]
  - Mental disorder [Unknown]
  - Arthralgia [Unknown]
  - Aspartate aminotransferase increased [Unknown]
  - Sleep disorder [Unknown]
  - Alanine aminotransferase increased [Unknown]
